FAERS Safety Report 5875143-6 (Version None)
Quarter: 2008Q3

REPORT INFORMATION
  Report Type: 
  Country: None (occurrence: None)
  Receive Date: 20080909
  Receipt Date: 20080905
  Transmission Date: 20090109
  Serious: Yes (Death, Hospitalization)
  Sender: FDA-Public Use
  Company Number: D0058627A

PATIENT
  Sex: Male

DRUGS (6)
  1. LEUKERAN [Suspect]
     Dosage: 8MG PER DAY
     Route: 048
     Dates: start: 20080123, end: 20080418
  2. SIMVASTATIN [Concomitant]
     Dosage: 20MG PER DAY
     Route: 048
     Dates: start: 20060101, end: 20080422
  3. BECLOMETHASONE DIPROPIONATE [Concomitant]
     Route: 055
     Dates: start: 20080101
  4. CAMOMILE [Concomitant]
     Indication: SINUSITIS
     Route: 055
     Dates: start: 20080201, end: 20080401
  5. LEUPROLIDE ACETATE [Concomitant]
     Indication: PROSTATE CANCER
     Dosage: 3.57MG MONTHLY
     Route: 058
     Dates: start: 19960101
  6. FORMOTEROL FUMERATE [Concomitant]
     Route: 055
     Dates: start: 20080101

REACTIONS (2)
  - COOMBS POSITIVE HAEMOLYTIC ANAEMIA [None]
  - DEATH [None]
